FAERS Safety Report 13702932 (Version 7)
Quarter: 2020Q4

REPORT INFORMATION
  Report Type: Spontaneous
  Country: US (occurrence: US)
  Receive Date: 20170629
  Receipt Date: 20201016
  Transmission Date: 20210113
  Serious: Yes (Other)
  Sender: FDA-Public Use
  Company Number: US-PFIZER INC-2017283804

PATIENT
  Age: 64 Year
  Sex: Female
  Weight: 91 kg

DRUGS (6)
  1. PANTOPRAZOLE [Concomitant]
     Active Substance: PANTOPRAZOLE
     Indication: GASTROOESOPHAGEAL REFLUX DISEASE
     Dosage: 40 MG, 1X/DAY
  2. PROPRANOLOL [Concomitant]
     Active Substance: PROPRANOLOL HYDROCHLORIDE
     Indication: HEART RATE INCREASED
     Dosage: 20 MG, 3X/DAY
  3. AMITRIPTYLINE [Concomitant]
     Active Substance: AMITRIPTYLINE
     Indication: PAIN
  4. AMITRIPTYLINE [Concomitant]
     Active Substance: AMITRIPTYLINE
     Indication: DEPRESSION
     Dosage: 150 MG, 1X/DAY, ONCE A NIGHT
  5. BUPROPION. [Concomitant]
     Active Substance: BUPROPION
     Indication: DEPRESSION
     Dosage: 150 MG, 1X/DAY, ONE IN THE MORNING
  6. LYRICA [Suspect]
     Active Substance: PREGABALIN
     Indication: FIBROMYALGIA
     Dosage: 300 MG, DAILY (100MG CAPSULES ONE MORNING AND TWO AT NIGHT)
     Dates: start: 2000

REACTIONS (9)
  - Stress [Unknown]
  - Dry mouth [Unknown]
  - Nausea [Unknown]
  - Fibula fracture [Recovering/Resolving]
  - Fall [Unknown]
  - Weight increased [Unknown]
  - Memory impairment [Unknown]
  - Daydreaming [Unknown]
  - Malaise [Unknown]

NARRATIVE: CASE EVENT DATE: 20170409
